FAERS Safety Report 13023799 (Version 1)
Quarter: 2016Q4

REPORT INFORMATION
  Report Type: Spontaneous
  Country: US (occurrence: US)
  Receive Date: 20161212
  Receipt Date: 20161212
  Transmission Date: 20170207
  Serious: Yes (Other)
  Sender: FDA-Public Use
  Company Number: None

PATIENT
  Age: 59 Year
  Sex: Female

DRUGS (11)
  1. METFORMIN [Concomitant]
     Active Substance: METFORMIN HYDROCHLORIDE
  2. ATENOLOL. [Concomitant]
     Active Substance: ATENOLOL
  3. STOOL SOFTENER (DOCUSATE CALCIUM) [Concomitant]
     Active Substance: DOCUSATE CALCIUM
  4. VITAMIN C [Concomitant]
     Active Substance: ASCORBIC ACID
  5. MULTIVITAMIN [Concomitant]
     Active Substance: VITAMINS
  6. GLATOPA [Suspect]
     Active Substance: GLATIRAMER ACETATE
     Indication: MULTIPLE SCLEROSIS
     Route: 058
     Dates: start: 20161012, end: 20161129
  7. TYLENOL [Concomitant]
     Active Substance: ACETAMINOPHEN
  8. PRILOSEC [Concomitant]
     Active Substance: OMEPRAZOLE MAGNESIUM
  9. VITAMIN B12 [Concomitant]
     Active Substance: CYANOCOBALAMIN
  10. LORATADINE. [Concomitant]
     Active Substance: LORATADINE
  11. VITAMIN D3 [Concomitant]
     Active Substance: CHOLECALCIFEROL

REACTIONS (4)
  - Chest pain [None]
  - Loss of consciousness [None]
  - Dysgeusia [None]
  - Dyspnoea [None]

NARRATIVE: CASE EVENT DATE: 20161129
